FAERS Safety Report 9725850 (Version 1)
Quarter: 2013Q4

REPORT INFORMATION
  Report Type: Spontaneous
  Country: US (occurrence: None)
  Receive Date: 20131202
  Receipt Date: 20131202
  Transmission Date: 20140711
  Serious: Yes (Life-Threatening, Hospitalization, Other)
  Sender: FDA-Public Use
  Company Number: None

PATIENT
  Age: 60 Year
  Sex: Male
  Weight: 85.73 kg

DRUGS (1)
  1. MOVIPREP [Suspect]
     Indication: BOWEL PREPARATION
     Dosage: ONE CONTAINER FOR 2 DOSES, POUCH A + POUCH B ?2X-3:00PM TO 5:00PM?BY MOUTH ?
     Route: 048
     Dates: start: 20130924, end: 20130924

REACTIONS (1)
  - Convulsion [None]
